FAERS Safety Report 8155102-3 (Version None)
Quarter: 2012Q1

REPORT INFORMATION
  Report Type: 
  Country: None (occurrence: None)
  Receive Date: 20120221
  Receipt Date: 20120217
  Transmission Date: 20120608
  Serious: Yes (Other)
  Sender: FDA-Public Use
  Company Number: TR-ABBOTT-11P-161-0866574-00

PATIENT
  Age: 40 Year
  Sex: Female

DRUGS (6)
  1. ZIPRASIDONE HYDROCHLORIDE [Interacting]
  2. CLOZAPINE [Suspect]
     Indication: DYSTONIA
  3. CLOZAPINE [Suspect]
  4. VALPROIC ACID [Interacting]
     Indication: AFFECTIVE DISORDER
     Route: 065
     Dates: start: 20090603
  5. CLOZAPINE [Suspect]
     Indication: PSYCHOTIC DISORDER
  6. ZIPRASIDONE HYDROCHLORIDE [Interacting]
     Indication: SCHIZOAFFECTIVE DISORDER
     Route: 065
     Dates: start: 20090101

REACTIONS (5)
  - TORTICOLLIS [None]
  - DRUG INTERACTION [None]
  - TREMOR [None]
  - HEART RATE INCREASED [None]
  - SALIVARY HYPERSECRETION [None]
